FAERS Safety Report 7299921-4 (Version None)
Quarter: 2011Q1

REPORT INFORMATION
  Report Type: 
  Country: None (occurrence: None)
  Receive Date: 20110217
  Receipt Date: 20110209
  Transmission Date: 20110831
  Serious: Yes (Hospitalization, Other)
  Sender: FDA-Public Use
  Company Number: JP-PFIZER INC-2011015984

PATIENT
  Age: 34 Year
  Sex: Male
  Weight: 59 kg

DRUGS (8)
  1. CELECOX [Suspect]
     Indication: RHEUMATOID ARTHRITIS
     Dosage: UNK
     Route: 048
     Dates: end: 20100726
  2. GASTER [Concomitant]
     Indication: PROPHYLAXIS
     Dosage: 1 DF, 2X/DAY
     Route: 048
     Dates: end: 20100726
  3. ATELEC [Concomitant]
     Dosage: 1 DF, 1X/DAY
     Route: 048
     Dates: start: 20100612
  4. ALOSITOL [Concomitant]
     Dosage: 1 DF, 1X/DAY
     Route: 048
     Dates: start: 20100612
  5. LENDORMIN [Concomitant]
     Dosage: 1 DF, 1X/DAY
     Route: 048
  6. RIDAURA [Concomitant]
     Indication: RHEUMATOID ARTHRITIS
     Dosage: 1 DF, 2X/DAY
     Route: 048
  7. RHEUMATREX [Concomitant]
     Indication: RHEUMATOID ARTHRITIS
     Dosage: 5 DF(3 CAPSULES IN THE MORNING AND 2 CAPSULES IN THE EVENING), WEEKLY
     Route: 048
     Dates: start: 20090418
  8. PREDONINE [Concomitant]
     Indication: RHEUMATOID ARTHRITIS
     Dosage: 1 DF, 1X/DAY
     Route: 048

REACTIONS (4)
  - GASTRIC ULCER HAEMORRHAGE [None]
  - ANAEMIA [None]
  - PAIN [None]
  - ALCOHOLISM [None]
